FAERS Safety Report 4375847-0 (Version None)
Quarter: 2004Q2

REPORT INFORMATION
  Report Type: 
  Country: None (occurrence: None)
  Receive Date: 20040609
  Receipt Date: 20040609
  Transmission Date: 20050107
  Serious: Yes (Life-Threatening)
  Sender: FDA-Public Use
  Company Number: None

PATIENT
  Age: 50 Year
  Sex: Male

DRUGS (6)
  1. LORAZEPAM [Suspect]
     Indication: AGITATION
     Dosage: 2 MG IV PRN
     Route: 042
     Dates: start: 20040301
  2. MORPHINE [Concomitant]
  3. ENOXAPARIN SODIUM [Concomitant]
  4. GATIFLOXACIN [Concomitant]
  5. PANCREALIPASE [Concomitant]
  6. MEGESTROL [Concomitant]

REACTIONS (1)
  - RESPIRATORY RATE DECREASED [None]
